FAERS Safety Report 5469734-4 (Version None)
Quarter: 2007Q3

REPORT INFORMATION
  Report Type: 
  Country: None (occurrence: None)
  Receive Date: 20070927
  Receipt Date: 20070314
  Transmission Date: 20080115
  Serious: No
  Sender: FDA-Public Use
  Company Number: US-AMGEN-KDL215112

PATIENT
  Sex: Female

DRUGS (1)
  1. NEUPOGEN [Suspect]
     Indication: NEUTROPENIA

REACTIONS (3)
  - BONE PAIN [None]
  - MUSCLE SPASMS [None]
  - PAIN IN EXTREMITY [None]
